FAERS Safety Report 19944212 (Version 1)
Quarter: 2021Q4

REPORT INFORMATION
  Report Type: Spontaneous
  Country: US (occurrence: US)
  Receive Date: 20211007
  Receipt Date: 20211007
  Transmission Date: 20220303
  Serious: Yes (Hospitalization)
  Sender: FDA-Public Use
  Company Number: None

PATIENT
  Age: 70 Year
  Sex: Male
  Weight: 113 kg

DRUGS (2)
  1. CARBOPLATIN [Suspect]
     Active Substance: CARBOPLATIN
     Dates: end: 20210707
  2. TAXOL [Suspect]
     Active Substance: PACLITAXEL
     Dates: end: 20210707

REACTIONS (7)
  - Hypotension [None]
  - Pyrexia [None]
  - Anaemia [None]
  - Sepsis [None]
  - Atrial flutter [None]
  - Acute kidney injury [None]
  - Gastrointestinal anastomotic leak [None]

NARRATIVE: CASE EVENT DATE: 20210921
